FAERS Safety Report 7656612-5 (Version None)
Quarter: 2011Q3

REPORT INFORMATION
  Report Type: 
  Country: None (occurrence: None)
  Receive Date: 20110804
  Receipt Date: 20110801
  Transmission Date: 20111222
  Serious: No
  Sender: FDA-Public Use
  Company Number: US-PFIZER INC-2011175006

PATIENT
  Sex: Female
  Weight: 68.9 kg

DRUGS (7)
  1. CELEXA [Suspect]
     Indication: DEPRESSION
  2. SEROQUEL [Suspect]
     Indication: DEPRESSION
     Dosage: 25 MG, 1X/DAY
     Route: 048
     Dates: start: 20110201, end: 20110101
  3. BUSPAR [Suspect]
     Indication: ANXIETY
     Dosage: 30 MG, 1X/DAY
     Route: 048
     Dates: start: 20100801
  4. BUSPAR [Suspect]
     Indication: DEPRESSION
  5. DEPO-PROVERA [Suspect]
     Dosage: 125 MG, EVERY 3 MONTHS
     Dates: start: 20101001, end: 20110101
  6. CELEXA [Suspect]
     Indication: ANXIETY
     Dosage: 40 MG, 1X/DAY
     Route: 048
     Dates: start: 20100801
  7. TRAZODONE HCL [Suspect]
     Indication: DEPRESSION
     Dosage: UNK
     Route: 048
     Dates: start: 20110201, end: 20110101

REACTIONS (8)
  - FATIGUE [None]
  - VOMITING [None]
  - HUMAN PAPILLOMA VIRUS TEST POSITIVE [None]
  - DEPRESSION [None]
  - MENORRHAGIA [None]
  - DYSPAREUNIA [None]
  - MALAISE [None]
  - DRUG INEFFECTIVE [None]
